FAERS Safety Report 17970278 (Version 1)
Quarter: 2020Q3

REPORT INFORMATION
  Report Type: Spontaneous
  Country: US (occurrence: US)
  Receive Date: 20200702
  Receipt Date: 20200702
  Transmission Date: 20201103
  Serious: Yes (Death, Other)
  Sender: FDA-Public Use
  Company Number: US-SUN PHARMACEUTICAL INDUSTRIES LTD-2020R1-251695

PATIENT
  Age: 66 Year
  Sex: Female

DRUGS (2)
  1. HYDROXYCHLOROQUINE [Suspect]
     Active Substance: HYDROXYCHLOROQUINE
     Indication: COVID-19
     Dosage: UNK
     Route: 065
     Dates: start: 20190321
  2. AZITHROMYCIN ANHYDROUS. [Suspect]
     Active Substance: AZITHROMYCIN ANHYDROUS
     Indication: COVID-19
     Dosage: UNK
     Route: 042
     Dates: start: 20190318

REACTIONS (5)
  - Electrocardiogram T wave abnormal [Unknown]
  - Hypermagnesaemia [Unknown]
  - Drug ineffective for unapproved indication [Fatal]
  - Off label use [Unknown]
  - Electrocardiogram QT prolonged [Unknown]
